FAERS Safety Report 10470844 (Version 7)
Quarter: 2016Q4

REPORT INFORMATION
  Report Type: Spontaneous
  Country: US (occurrence: US)
  Receive Date: 20140923
  Receipt Date: 20161019
  Transmission Date: 20170206
  Serious: Yes (Hospitalization, Other)
  Sender: FDA-Public Use
  Company Number: US-MERCK-1409USA010686

PATIENT
  Sex: Female
  Weight: 73.47 kg

DRUGS (1)
  1. JANUVIA [Suspect]
     Active Substance: SITAGLIPTIN PHOSPHATE
     Indication: TYPE 2 DIABETES MELLITUS
     Dosage: 100 MG, QD
     Route: 048
     Dates: start: 20080707, end: 20120927

REACTIONS (41)
  - Adenocarcinoma pancreas [Unknown]
  - Urinary tract inflammation [Unknown]
  - Aortic thrombosis [Unknown]
  - Drug ineffective [Unknown]
  - Bile duct cancer [Unknown]
  - Renal disorder [Unknown]
  - Neoplasm [Unknown]
  - Biliary sphincterotomy [Unknown]
  - Bile duct stenosis [Unknown]
  - Pancreatic disorder [Unknown]
  - Dysphagia [Unknown]
  - Dyspepsia [Unknown]
  - Pulmonary embolism [Unknown]
  - Coronary arterial stent insertion [Unknown]
  - Metastases to lung [Unknown]
  - Cholecystectomy [Unknown]
  - Malignant ascites [Unknown]
  - Haematochezia [Unknown]
  - Microalbuminuria [Unknown]
  - Treatment failure [Unknown]
  - Urinary tract infection [Unknown]
  - Nephrolithiasis [Recovered/Resolved]
  - Cholelithiasis [Unknown]
  - Coronary arterial stent insertion [Unknown]
  - Amnesia [Unknown]
  - Contusion [Unknown]
  - Aortic aneurysm [Unknown]
  - Hysterectomy [Unknown]
  - Adverse drug reaction [Unknown]
  - Arteriosclerosis coronary artery [Unknown]
  - Pancreatitis [Unknown]
  - Renal cyst [Unknown]
  - Osteopenia [Unknown]
  - Thrombocytopenia [Unknown]
  - Type 1 diabetes mellitus [Unknown]
  - Haemorrhoids [Unknown]
  - Temperature intolerance [Unknown]
  - HIV infection [Unknown]
  - Arthralgia [Unknown]
  - Drug ineffective [Unknown]
  - Blood creatinine increased [Unknown]

NARRATIVE: CASE EVENT DATE: 201103
